FAERS Safety Report 5089869-8 (Version None)
Quarter: 2006Q3

REPORT INFORMATION
  Report Type: 
  Country: None (occurrence: None)
  Receive Date: 20060727
  Receipt Date: 20060517
  Transmission Date: 20061208
  Serious: Yes (Other)
  Sender: FDA-Public Use
  Company Number: 2006066152

PATIENT
  Sex: Female

DRUGS (6)
  1. LYRICA [Suspect]
     Indication: NEURALGIA
     Dosage: 150 MG (75 MG, 2 IN 1 D), UNKNOWN
     Route: 065
     Dates: start: 20060101
  2. RESTORIL [Concomitant]
  3. CELEBREX [Concomitant]
  4. METROGEL [Concomitant]
  5. ROBAXIN [Concomitant]
  6. THYROID TAB [Concomitant]

REACTIONS (2)
  - ONYCHOMYCOSIS [None]
  - VISION BLURRED [None]
